FAERS Safety Report 15904850 (Version 1)
Quarter: 2019Q1

REPORT INFORMATION
  Report Type: Spontaneous
  Country: US (occurrence: US)
  Receive Date: 20190204
  Receipt Date: 20190204
  Transmission Date: 20190417
  Serious: Yes (Death, Hospitalization, Other)
  Sender: FDA-Public Use
  Company Number: US-SA-2017SA130556

PATIENT
  Age: 75 Year
  Sex: Male

DRUGS (13)
  1. CITRIC ACID [Concomitant]
     Active Substance: CITRIC ACID MONOHYDRATE
  2. OXYCODONE AND ACETAMINOPHEN [Concomitant]
     Active Substance: ACETAMINOPHEN\OXYCODONE HYDROCHLORIDE
  3. PRALUENT [Suspect]
     Active Substance: ALIROCUMAB
     Indication: TYPE IIA HYPERLIPIDAEMIA
     Dosage: 75 MG,QOW
     Route: 058
     Dates: start: 20160830
  4. VERAPAMIL [Concomitant]
     Active Substance: VERAPAMIL HYDROCHLORIDE
  5. ALLOPURINOL. [Concomitant]
     Active Substance: ALLOPURINOL
  6. CLONAZEPAM. [Concomitant]
     Active Substance: CLONAZEPAM
  7. CEFPODOXIME [Concomitant]
     Active Substance: CEFPODOXIME
  8. MULTAQ [Concomitant]
     Active Substance: DRONEDARONE
  9. FUROSEMIDE. [Concomitant]
     Active Substance: FUROSEMIDE
  10. DEXTROAMPHETAMINE [DEXAMFETAMINE] [Concomitant]
     Active Substance: DEXTROAMPHETAMINE
  11. TAMSULOSIN [Concomitant]
     Active Substance: TAMSULOSIN
  12. DIALYTE [Concomitant]
  13. WARFARIN [Concomitant]
     Active Substance: WARFARIN

REACTIONS (3)
  - Fall [Fatal]
  - Hospitalisation [Unknown]
  - Cerebral haemorrhage [Fatal]

NARRATIVE: CASE EVENT DATE: 20190123
